FAERS Safety Report 6435158-6 (Version None)
Quarter: 2009Q4

REPORT INFORMATION
  Report Type: 
  Country: None (occurrence: None)
  Receive Date: 20091110
  Receipt Date: 20090911
  Transmission Date: 20100525
  Serious: No
  Sender: FDA-Public Use
  Company Number: US-BRISTOL-MYERS SQUIBB COMPANY-14778914

PATIENT
  Sex: Female

DRUGS (1)
  1. IXEMPRA KIT [Suspect]
     Dosage: DURATION:1 AND 1/2 HOURS

REACTIONS (2)
  - HEADACHE [None]
  - INCORRECT DRUG ADMINISTRATION DURATION [None]
